FAERS Safety Report 10059215 (Version 4)
Quarter: 2018Q3

REPORT INFORMATION
  Report Type: Spontaneous
  Country: JP (occurrence: JP)
  Receive Date: 20140404
  Receipt Date: 20180823
  Transmission Date: 20181010
  Serious: Yes (Death, Hospitalization, Other)
  Sender: FDA-Public Use
  Company Number: JP-JNJFOC-20140300473

PATIENT
  Age: 71 Year
  Sex: Male
  Weight: 60 kg

DRUGS (8)
  1. PROPOFOL. [Concomitant]
     Active Substance: PROPOFOL
     Route: 065
  2. XARELTO [Suspect]
     Active Substance: RIVAROXABAN
     Indication: CEREBROVASCULAR ACCIDENT PROPHYLAXIS
     Route: 048
     Dates: start: 20140125, end: 20140130
  3. ULTIVA [Concomitant]
     Active Substance: REMIFENTANIL HYDROCHLORIDE
     Route: 065
  4. SEVOFLURANE. [Concomitant]
     Active Substance: SEVOFLURANE
     Route: 065
  5. XARELTO [Suspect]
     Active Substance: RIVAROXABAN
     Indication: ATRIAL FIBRILLATION
     Route: 048
     Dates: start: 20140125, end: 20140130
  6. XARELTO [Suspect]
     Active Substance: RIVAROXABAN
     Indication: ATRIAL FIBRILLATION
     Route: 048
     Dates: start: 20140131, end: 20140215
  7. CILOSTAZOL. [Concomitant]
     Active Substance: CILOSTAZOL
     Route: 065
  8. XARELTO [Suspect]
     Active Substance: RIVAROXABAN
     Indication: CEREBROVASCULAR ACCIDENT PROPHYLAXIS
     Route: 048
     Dates: start: 20140131, end: 20140215

REACTIONS (11)
  - Subdural haematoma [Fatal]
  - Respiratory arrest [Fatal]
  - Decerebrate posture [Unknown]
  - Cerebral haemorrhage [Unknown]
  - Pneumonia aspiration [Unknown]
  - Fall [Unknown]
  - Brain herniation [Fatal]
  - Mydriasis [Unknown]
  - Vomiting [Unknown]
  - Altered state of consciousness [Unknown]
  - Contusion [Unknown]

NARRATIVE: CASE EVENT DATE: 20140213
